FAERS Safety Report 9731402 (Version 1)
Quarter: 2013Q4

REPORT INFORMATION
  Report Type: Spontaneous
  Country: DE (occurrence: None)
  Receive Date: 20131203
  Receipt Date: 20131203
  Transmission Date: 20140711
  Serious: Yes (Other)
  Sender: FDA-Public Use
  Company Number: 7251673

PATIENT
  Age: 26 Year
  Sex: Female

DRUGS (1)
  1. LEVOTHYROXINE [Suspect]
     Indication: HYPOTHYROIDISM
     Dosage: 50 MCG

REACTIONS (4)
  - Foetal death [None]
  - Small size placenta [None]
  - Placental infarction [None]
  - Maternal exposure during pregnancy [None]
